FAERS Safety Report 13783574 (Version 1)
Quarter: 2017Q3

REPORT INFORMATION
  Report Type: Spontaneous
  Country: US (occurrence: US)
  Receive Date: 20170724
  Receipt Date: 20170724
  Transmission Date: 20171127
  Serious: No
  Sender: FDA-Public Use
  Company Number: US-BAYER-2017-139437

PATIENT
  Age: 49 Year
  Sex: Male

DRUGS (4)
  1. STAXYN [Suspect]
     Active Substance: VARDENAFIL HYDROCHLORIDE TRIHYDRATE
     Dosage: UNK UNK, QD
     Route: 048
     Dates: start: 20170709
  2. PREVACID [Concomitant]
     Active Substance: LANSOPRAZOLE
  3. TESTOSTERONE. [Concomitant]
     Active Substance: TESTOSTERONE
  4. ANASTROZOLE. [Concomitant]
     Active Substance: ANASTROZOLE

REACTIONS (2)
  - Erectile dysfunction [None]
  - Drug ineffective [None]

NARRATIVE: CASE EVENT DATE: 201707
